FAERS Safety Report 22528579 (Version 1)
Quarter: 2023Q2

REPORT INFORMATION
  Report Type: Spontaneous
  Country: US (occurrence: US)
  Receive Date: 20230607
  Receipt Date: 20230607
  Transmission Date: 20230721
  Serious: Yes (Hospitalization)
  Sender: FDA-Public Use
  Company Number: US-BRISTOL-MYERS SQUIBB COMPANY-2023-079123

PATIENT
  Age: 50 Year
  Sex: Male

DRUGS (2)
  1. IDHIFA [Suspect]
     Active Substance: ENASIDENIB MESYLATE
     Indication: Acute myeloid leukaemia (in remission)
     Dosage: ONGOING
     Route: 048
     Dates: start: 20221120
  2. VENCLEXTA [Concomitant]
     Active Substance: VENETOCLAX
     Indication: Acute myeloid leukaemia (in remission)
     Dosage: FREQUENCY: ON DAYS 1-7 OF 28 DAY CYCLE
     Route: 048
     Dates: start: 20230109

REACTIONS (1)
  - Hospitalisation [Unknown]
